FAERS Safety Report 23423965 (Version 1)
Quarter: 2024Q1

REPORT INFORMATION
  Report Type: Spontaneous
  Country: US (occurrence: US)
  Receive Date: 20240119
  Receipt Date: 20240119
  Transmission Date: 20240410
  Serious: No
  Sender: FDA-Public Use
  Company Number: US-AUROBINDO-AUR-APL-2023-013859

PATIENT
  Age: 24 Year
  Sex: Female
  Weight: 74 kg

DRUGS (1)
  1. LEVONORGESTREL [Suspect]
     Active Substance: LEVONORGESTREL
     Indication: Contraception
     Dosage: 1 DOSAGE FORM (1 TOTAL)
     Route: 065
     Dates: start: 20230402

REACTIONS (4)
  - Abdominal pain [Not Recovered/Not Resolved]
  - Amenorrhoea [Unknown]
  - Menstruation delayed [Unknown]
  - Polymenorrhoea [Unknown]

NARRATIVE: CASE EVENT DATE: 20230509
